FAERS Safety Report 6819402-9 (Version None)
Quarter: 2010Q3

REPORT INFORMATION
  Report Type: 
  Country: None (occurrence: None)
  Receive Date: 20100707
  Receipt Date: 20100625
  Transmission Date: 20110219
  Serious: Yes (Other)
  Sender: FDA-Public Use
  Company Number: JP-PFIZER INC-2010075474

PATIENT
  Age: 40 Year
  Sex: Female

DRUGS (3)
  1. PRODIF [Suspect]
     Route: 041
  2. VFEND [Suspect]
     Dosage: 600 MG, 1X/DAY
     Route: 048
     Dates: start: 20100612
  3. WARFARIN [Concomitant]

REACTIONS (1)
  - INTERNATIONAL NORMALISED RATIO INCREASED [None]
